FAERS Safety Report 15048385 (Version 3)
Quarter: 2020Q1

REPORT INFORMATION
  Report Type: Report from Study
  Country: GB (occurrence: GB)
  Receive Date: 20180622
  Receipt Date: 20200207
  Transmission Date: 20200409
  Serious: Yes (Hospitalization)
  Sender: FDA-Public Use
  Company Number: GB-ROCHE-2077664

PATIENT
  Sex: Female

DRUGS (3)
  1. ROACTEMRA [Suspect]
     Active Substance: TOCILIZUMAB
     Route: 058
  2. ROACTEMRA [Suspect]
     Active Substance: TOCILIZUMAB
     Indication: RHEUMATOID ARTHRITIS
     Dosage: WEEKLY FOR 1 YEAR
     Route: 058
     Dates: start: 20161012
  3. METHOTREXATE. [Concomitant]
     Active Substance: METHOTREXATE

REACTIONS (7)
  - C-reactive protein increased [Unknown]
  - Diverticulum [Unknown]
  - Pain [Unknown]
  - Infection [Unknown]
  - Pharyngitis [Unknown]
  - Malaise [Unknown]
  - Pyrexia [Unknown]
